FAERS Safety Report 15974945 (Version 2)
Quarter: 2019Q1

REPORT INFORMATION
  Report Type: Spontaneous
  Country: JP (occurrence: JP)
  Receive Date: 20190218
  Receipt Date: 20190306
  Transmission Date: 20190418
  Serious: Yes (Other)
  Sender: FDA-Public Use
  Company Number: JP-ROCHE-2267523

PATIENT
  Age: 5 Decade
  Sex: Male

DRUGS (1)
  1. TECENTRIQ [Suspect]
     Active Substance: ATEZOLIZUMAB
     Indication: NON-SMALL CELL LUNG CANCER
     Dosage: MOST RECENT DOSE ON 30/JAN/2019.
     Route: 041
     Dates: start: 20190130

REACTIONS (1)
  - Motor neurone disease [Recovered/Resolved]

NARRATIVE: CASE EVENT DATE: 20190202
